FAERS Safety Report 14941015 (Version 1)
Quarter: 2018Q2

REPORT INFORMATION
  Report Type: Report from Study
  Country: ES (occurrence: ES)
  Receive Date: 20180525
  Receipt Date: 20180525
  Transmission Date: 20180711
  Serious: Yes (Death, Other)
  Sender: FDA-Public Use
  Company Number: ES-ELI_LILLY_AND_COMPANY-ES201805011029

PATIENT
  Age: 84 Year
  Sex: Female

DRUGS (6)
  1. REVOLADE [Concomitant]
     Active Substance: ELTROMBOPAG
     Indication: PLATELET COUNT DECREASED
     Dosage: UNK, DAILY
  2. CALCIUM [Concomitant]
     Active Substance: CALCIUM
     Indication: BONE DISORDER
     Dosage: UNK, DAILY
  3. TERIPARATIDE [Suspect]
     Active Substance: TERIPARATIDE
     Indication: OSTEOPOROSIS
     Dosage: 20 UG, DAILY
     Route: 058
     Dates: start: 20180212, end: 20180325
  4. IRON                               /00023516/ [Concomitant]
     Indication: ANAEMIA
     Dosage: UNK, DAILY
  5. VIMOVO [Concomitant]
     Active Substance: ESOMEPRAZOLE MAGNESIUM\NAPROXEN
     Indication: INFLAMMATION
     Dosage: UNK, DAILY
  6. LOSARTAN. [Concomitant]
     Active Substance: LOSARTAN
     Indication: BLOOD PRESSURE ABNORMAL
     Dosage: UNK, DAILY

REACTIONS (3)
  - Anaemia [Unknown]
  - Death [Fatal]
  - Cerebral thrombosis [Unknown]

NARRATIVE: CASE EVENT DATE: 20180428
